FAERS Safety Report 16117057 (Version 1)
Quarter: 2019Q2

REPORT INFORMATION
  Report Type: Spontaneous
  Country: US (occurrence: US)
  Receive Date: 20190325
  Receipt Date: 20190325
  Transmission Date: 20190711
  Serious: Yes (Hospitalization)
  Sender: FDA-Public Use
  Company Number: None

PATIENT
  Age: 69 Year
  Sex: Female

DRUGS (9)
  1. MELOXICAM 7.5MG TABLET [Concomitant]
  2. OMEPRAZOLE 40MG CAPSULE [Concomitant]
  3. AZATHIOPRINE 50MG TABLET [Concomitant]
  4. ESBRIET [Suspect]
     Active Substance: PIRFENIDONE
     Indication: IDIOPATHIC PULMONARY FIBROSIS
     Route: 048
  5. ASPIRIN 81 MG TABLET [Concomitant]
  6. VITAMIN D3 400 UNIT TABLET [Concomitant]
  7. PROMETHAZINE 25 MG TABLET [Concomitant]
  8. PROBIOTIC CAPSULE [Concomitant]
  9. LEVOTHYROXINE 75 MCG TABLET [Concomitant]

REACTIONS (2)
  - Influenza [None]
  - Blood count abnormal [None]

NARRATIVE: CASE EVENT DATE: 20190313
